FAERS Safety Report 17593368 (Version 1)
Quarter: 2020Q1

REPORT INFORMATION
  Report Type: Report from Study
  Country: US (occurrence: US)
  Receive Date: 20200327
  Receipt Date: 20200327
  Transmission Date: 20200409
  Serious: Yes (Death, Hospitalization)
  Sender: FDA-Public Use
  Company Number: US-JNJFOC-20050606974

PATIENT
  Age: 70 Year
  Sex: Female
  Weight: 68.1 kg

DRUGS (20)
  1. CISAPRIDE [Suspect]
     Active Substance: CISAPRIDE
     Route: 048
     Dates: start: 20010129, end: 20040229
  2. ASPIRIN. [Concomitant]
     Active Substance: ASPIRIN
  3. ADVAIR HFA [Concomitant]
     Active Substance: FLUTICASONE PROPIONATE\SALMETEROL XINAFOATE
  4. DUONEB [Concomitant]
     Active Substance: ALBUTEROL SULFATE\IPRATROPIUM BROMIDE
  5. LISINOPRIL. [Concomitant]
     Active Substance: LISINOPRIL
     Dosage: HOLD FOR SYSTOLIC BLOOD PRESSURE LESS THAN 90 MMHG
  6. BISACODYL. [Concomitant]
     Active Substance: BISACODYL
     Dates: start: 20030609
  7. BENZONATE [Concomitant]
     Active Substance: BENZONATATE
     Dates: start: 20031105
  8. LEXAPRO [Concomitant]
     Active Substance: ESCITALOPRAM OXALATE
     Indication: DEPRESSION
  9. B COMPLEX WITH B12 [Concomitant]
     Dates: start: 20030709
  10. FERROUS GLUCONATE [Concomitant]
     Active Substance: FERROUS GLUCONATE
     Dates: start: 20040418
  11. OXYCONTIN [Concomitant]
     Active Substance: OXYCODONE HYDROCHLORIDE
     Dates: start: 20040420
  12. DUONEB [Concomitant]
     Active Substance: ALBUTEROL SULFATE\IPRATROPIUM BROMIDE
  13. CISAPRIDE [Suspect]
     Active Substance: CISAPRIDE
     Indication: IMPAIRED GASTRIC EMPTYING
     Route: 048
     Dates: start: 20040303, end: 20050313
  14. MIACALCIN [Concomitant]
     Active Substance: CALCITONIN SALMON
  15. PROTONIX [Concomitant]
     Active Substance: PANTOPRAZOLE SODIUM
  16. METFORMIN [Concomitant]
     Active Substance: METFORMIN HYDROCHLORIDE
     Indication: DIABETES MELLITUS
  17. GABAPENTIN. [Concomitant]
     Active Substance: GABAPENTIN
  18. FUROSEMIDE. [Concomitant]
     Active Substance: FUROSEMIDE
     Indication: CARDIAC FAILURE CONGESTIVE
  19. OSCAL D [Concomitant]
     Active Substance: CALCIUM CARBONATE\CHOLECALCIFEROL
  20. K-DUR [Concomitant]
     Active Substance: POTASSIUM CHLORIDE

REACTIONS (3)
  - Cardiac failure [Recovered/Resolved]
  - Hypercapnia [Recovered/Resolved]
  - Pneumonia [Recovered/Resolved]

NARRATIVE: CASE EVENT DATE: 20040229
